FAERS Safety Report 10074699 (Version 1)
Quarter: 2014Q2

REPORT INFORMATION
  Report Type: Spontaneous
  Country: GB (occurrence: GB)
  Receive Date: 20140414
  Receipt Date: 20140414
  Transmission Date: 20141212
  Serious: Yes (Other)
  Sender: FDA-Public Use
  Company Number: GB-BEH-2014041638

PATIENT
  Age: 47 Year
  Sex: Female

DRUGS (20)
  1. HIZENTRA [Suspect]
     Indication: LIPIDS DECREASED
     Dosage: DOSE: 6G, CUMULATIVE DOSE: 6G, FREQUENCY: (ILLEGIBLE) WEEKLY
     Route: 058
     Dates: start: 20131111, end: 20131111
  2. HIZENTRA [Suspect]
     Dosage: DOSE: 6G, CUMULATIVE DOSE: 12G, FREQUENCY: (ILLEGIBLE) WEEKLY
     Route: 058
     Dates: start: 20131118, end: 20131118
  3. HIZENTRA [Suspect]
     Indication: SECONDARY IMMUNODEFICIENCY
     Dosage: DOSE: 6G, CUMULATIVE DOSE: 18G, FREQUENCY: (ILLEGIBLE) WEEKLY
     Route: 058
     Dates: start: 20131125, end: 20131125
  4. HIZENTRA [Suspect]
     Indication: INFLAMMATION
     Dosage: DOSE: 6G, CUMULATIVE DOSE: 24G, FREQUENCY: (ILLEGIBLE) WEEKLY
     Route: 058
     Dates: start: 20131202, end: 20131202
  5. HIZENTRA [Suspect]
     Indication: BRONCHIECTASIS
     Dosage: DOSE: 6G, CUMULATIVE DOSE: 30G, FREQUENCY: (ILLEGIBLE) WEEKLY
     Route: 058
     Dates: start: 20131209, end: 20131209
  6. COLISTIN NEBULISERS [Suspect]
     Indication: LIPIDS DECREASED
     Route: 055
     Dates: start: 20131111, end: 20140106
  7. MISOPROSTOL [Concomitant]
     Indication: LIPIDS DECREASED
     Dosage: BATCH NO.: UNKNOWN, STOP DATE: TILL PRESENT
     Route: 048
     Dates: start: 201210
  8. LINELENIC ACID [Concomitant]
     Indication: LIPIDS DECREASED
     Dosage: BATCH NO.: UNKNOWN, STOP DATE: TILL PRESENT, DAILY DOSE: TT, DOSAGE, FORM AND FREQUENCY: TBD
     Route: 048
     Dates: start: 201210
  9. SILDENAFIL [Concomitant]
     Indication: LIPIDS DECREASED
     Dosage: BATCH NO.: UNKNOWN, STOP DATE: TILL PRESENT
     Route: 048
     Dates: start: 201210
  10. AMLODIPINE [Concomitant]
     Indication: RENAL FAILURE CHRONIC
     Dosage: BATCH NO.: UNKNOWN, STOP DATE: TILL PRESENT
     Route: 048
     Dates: start: 2010
  11. AMLODIPINE [Concomitant]
     Indication: RENAL FAILURE CHRONIC
     Dosage: BATCH NO.: UNKNOWN, STOP DATE: TILL PRESENT
     Route: 048
     Dates: start: 2010
  12. SODIUM CARBONATE [Concomitant]
     Indication: RENAL FAILURE CHRONIC
     Dosage: BATCH NO.: UNKNOWN, STOP DATE: TILL PRESENT
     Route: 048
     Dates: start: 2010
  13. CALCICHEW D3 FORTE [Concomitant]
     Dosage: BATCH NO.: UNKNOWN, STOP DATE: TILL PRESENT, DAILY DOSE: TT, DOSAGE, FORM AND FREQUENCY: T TDS
     Route: 048
     Dates: start: 2010
  14. EPO [Concomitant]
     Indication: NEPHROGENIC ANAEMIA
     Dosage: BATCH NO.: UNKNOWN, DATES OF ADMINISTRATION: PRE 2010
     Route: 058
  15. PANTOPRAZOLE [Concomitant]
     Indication: ULCER
     Dosage: DATES OF ADMINISTRATION: PRE 2010
     Route: 048
  16. TOLTERODINE [Concomitant]
     Dosage: DATES OF ADMINISTRATION: PRE 2010
     Route: 048
  17. PROMIXIN [Concomitant]
     Dosage: DATES OF ADMINISTRATION: PRE 2010, DAILY DOSE: 2MU, DOSAGE, FORM AND FREQUENCY: IMU BD
     Route: 055
  18. AZITHROMYCIN [Concomitant]
     Indication: UPPER RESPIRATORY TRACT INFECTION
     Dosage: DATES OF ADMINISTRATION: PRE 2010, DOSAGE, FORM AND FREQUENCY: 250 MG M, W, F
     Route: 048
  19. ALFACALCIDOL [Concomitant]
  20. INDAPAMIDE SR [Concomitant]

REACTIONS (3)
  - Renal impairment [Not Recovered/Not Resolved]
  - Blood creatinine increased [Not Recovered/Not Resolved]
  - Glomerular filtration rate decreased [Not Recovered/Not Resolved]
